FAERS Safety Report 19381847 (Version 1)
Quarter: 2021Q2

REPORT INFORMATION
  Report Type: Spontaneous
  Country: US (occurrence: US)
  Receive Date: 20210606
  Receipt Date: 20210606
  Transmission Date: 20210717
  Serious: No
  Sender: FDA-Public Use
  Company Number: None

PATIENT
  Age: 65 Year
  Sex: Male
  Weight: 107.1 kg

DRUGS (5)
  1. TAMSULOSIN [Concomitant]
     Active Substance: TAMSULOSIN
  2. ALLEGRA [Concomitant]
     Active Substance: FEXOFENADINE HYDROCHLORIDE
  3. GABAPENTENT [Concomitant]
  4. MYRBETRIQ [Concomitant]
     Active Substance: MIRABEGRON
  5. CONTRAVE [Suspect]
     Active Substance: BUPROPION HYDROCHLORIDE\NALTREXONE HYDROCHLORIDE
     Indication: WEIGHT DECREASED
     Dosage: ?          QUANTITY:3 TABLET(S);?
     Route: 048
     Dates: start: 20210526, end: 20210606

REACTIONS (4)
  - Faeces discoloured [None]
  - Dyschezia [None]
  - Constipation [None]
  - Faeces hard [None]

NARRATIVE: CASE EVENT DATE: 20210606
